FAERS Safety Report 6935968-2 (Version None)
Quarter: 2010Q3

REPORT INFORMATION
  Report Type: 
  Country: None (occurrence: None)
  Receive Date: 20100817
  Receipt Date: 20100802
  Transmission Date: 20110219
  Serious: Yes (Other)
  Sender: FDA-Public Use
  Company Number: CV20100407

PATIENT
  Age: 82 Year
  Sex: Female

DRUGS (5)
  1. FUROSEMIDE [Suspect]
     Indication: PRODUCT USED FOR UNKNOWN INDICATION
     Dates: start: 20100612
  2. CO-CODAMOL (PANADEINE CO) [Concomitant]
  3. ETODOLAC [Concomitant]
  4. METHOTREXATE [Concomitant]
  5. ACETAMINOPHEN [Concomitant]

REACTIONS (1)
  - ARTHRALGIA [None]
